FAERS Safety Report 17188457 (Version 1)
Quarter: 2019Q4

REPORT INFORMATION
  Report Type: Spontaneous
  Country: US (occurrence: US)
  Receive Date: 20191222
  Receipt Date: 20191222
  Transmission Date: 20200122
  Serious: No
  Sender: FDA-Public Use
  Company Number: NVSC2019US076817

PATIENT

DRUGS (1)
  1. TAFINLAR COMBO (DABRAFENIB\TRAMETINIB) [Suspect]
     Active Substance: DABRAFENIB\TRAMETINIB
     Indication: LUNG NEOPLASM MALIGNANT
     Route: 048

REACTIONS (1)
  - Pyrexia [Unknown]
